FAERS Safety Report 13281898 (Version 1)
Quarter: 2017Q1

REPORT INFORMATION
  Report Type: Spontaneous
  Country: US (occurrence: US)
  Receive Date: 20170301
  Receipt Date: 20170301
  Transmission Date: 20170428
  Serious: No
  Sender: FDA-Public Use
  Company Number: US-FERRINGPH-2016FE01182

PATIENT
  Sex: Female
  Weight: 102.4 kg

DRUGS (2)
  1. DDAVP [Suspect]
     Active Substance: DESMOPRESSIN ACETATE
     Indication: HAEMOSTASIS
     Dosage: UNK, ONCE/SINGLE
     Route: 045
     Dates: start: 1998, end: 1998
  2. LEVOTHYROXINE. [Concomitant]
     Active Substance: LEVOTHYROXINE

REACTIONS (2)
  - Drug ineffective for unapproved indication [Unknown]
  - Off label use [None]

NARRATIVE: CASE EVENT DATE: 1998
